FAERS Safety Report 6501042-2 (Version None)
Quarter: 2009Q4

REPORT INFORMATION
  Report Type: 
  Country: None (occurrence: None)
  Receive Date: 20091216
  Receipt Date: 20090612
  Transmission Date: 20100525
  Serious: No
  Sender: FDA-Public Use
  Company Number: A0791163A

PATIENT
  Age: 50 Year
  Sex: Female

DRUGS (1)
  1. COMMIT [Suspect]
     Dates: start: 20090612

REACTIONS (3)
  - DRUG ADMINISTRATION ERROR [None]
  - SALIVARY HYPERSECRETION [None]
  - THROAT IRRITATION [None]
